FAERS Safety Report 5195823-8 (Version None)
Quarter: 2007Q1

REPORT INFORMATION
  Report Type: 
  Country: None (occurrence: None)
  Receive Date: 20070102
  Receipt Date: 20061222
  Transmission Date: 20070707
  Serious: Yes (Other)
  Sender: FDA-Public Use
  Company Number: FRWYE942522DEC06

PATIENT
  Sex: Male

DRUGS (2)
  1. ENBREL [Suspect]
     Indication: DRUG USE FOR UNKNOWN INDICATION
     Dosage: 50 MG TOTAL WEEKLY, THEN 25 MG TOTAL WEEKLY
     Route: 058
     Dates: start: 20041105
  2. NOVATREX [Suspect]
     Dosage: UNKNOWN
     Route: 048

REACTIONS (1)
  - COLON CANCER [None]
